FAERS Safety Report 8634572 (Version 3)
Quarter: 2013Q3

REPORT INFORMATION
  Report Type: Report from Study
  Country: CA (occurrence: CA)
  Receive Date: 20120626
  Receipt Date: 20130705
  Transmission Date: 20140515
  Serious: Yes (Other)
  Sender: FDA-Public Use
  Company Number: PHHY2012CA053435

PATIENT
  Age: 67 Year
  Sex: Female

DRUGS (4)
  1. ACLASTA [Suspect]
     Indication: OSTEOPOROSIS
     Dosage: UNK UKN, ONCE ANNUALLY
     Route: 042
     Dates: start: 20090709
  2. ACLASTA [Suspect]
     Dosage: UNK UKN, ONCE ANNUALLY
     Route: 042
     Dates: start: 20100715
  3. ACLASTA [Suspect]
     Dosage: UNK UKN, ONCE ANNUALLY
     Route: 042
     Dates: start: 20110706
  4. ACLASTA [Suspect]
     Dosage: UNK UKN, ONCE ANNUALLY
     Route: 042
     Dates: start: 20120704

REACTIONS (3)
  - Temporomandibular joint syndrome [Unknown]
  - Pain in jaw [Unknown]
  - Joint crepitation [Unknown]
